FAERS Safety Report 9368906 (Version 2)
Quarter: 2013Q2

REPORT INFORMATION
  Report Type: Spontaneous
  Country: US (occurrence: None)
  Receive Date: 20130624
  Receipt Date: 20130627
  Transmission Date: 20140414
  Serious: Yes (Death, Hospitalization)
  Sender: FDA-Public Use
  Company Number: 2013SGN00336

PATIENT
  Age: 73 Year
  Sex: Male
  Weight: 60.3 kg

DRUGS (1)
  1. BRENTUXIMAB VEDOTIN (BRENTUXIMAB VEDOTIN) INJECTION [Suspect]
     Indication: MESOTHELIOMA
     Dosage: 2.4 MG/KG, QCYCLE, INTRAVENOUS
     Route: 042
     Dates: start: 20130509, end: 20130509

REACTIONS (17)
  - Respiratory failure [None]
  - Lung infiltration [None]
  - Somnolence [None]
  - Dyspnoea [None]
  - Tachycardia [None]
  - Activities of daily living impaired [None]
  - Rhonchi [None]
  - White blood cell count decreased [None]
  - Blood urine present [None]
  - White blood cells urine [None]
  - Respiratory rate increased [None]
  - Rales [None]
  - Wheezing [None]
  - Neutrophil count increased [None]
  - Respiratory distress [None]
  - Pneumonia fungal [None]
  - Infection [None]
